FAERS Safety Report 4644599-9 (Version None)
Quarter: 2005Q2

REPORT INFORMATION
  Report Type: 
  Country: None (occurrence: None)
  Receive Date: 20050425
  Receipt Date: 20050425
  Transmission Date: 20051028
  Serious: Yes (Hospitalization)
  Sender: FDA-Public Use
  Company Number: None

PATIENT
  Age: 15 Year
  Sex: Male
  Weight: 91 kg

DRUGS (5)
  1. CHROMIC PHOSPHATE P 32 [Suspect]
     Indication: HAEMOPHILIC ARTHRITIS
     Dosage: 1.5MILLICURI
     Dates: start: 20040112, end: 20040112
  2. SODIUM PHOSPHATE P 32 [Suspect]
  3. ANTIHEMOPHILIC FACTOR (HUMAN) [Concomitant]
  4. STRATTERA [Concomitant]
  5. HUMOLOG INSULIN [Concomitant]

REACTIONS (4)
  - LEUKAEMIA [None]
  - RENAL FAILURE [None]
  - RESPIRATORY FAILURE [None]
  - UPPER RESPIRATORY TRACT INFECTION [None]
